FAERS Safety Report 13005121 (Version 1)
Quarter: 2016Q4

REPORT INFORMATION
  Report Type: Report from Study
  Country: US (occurrence: US)
  Receive Date: 20161207
  Receipt Date: 20161207
  Transmission Date: 20170207
  Serious: Yes (Death)
  Sender: FDA-Public Use
  Company Number: US-ROCHE-1864088

PATIENT
  Sex: Female

DRUGS (2)
  1. HERCEPTIN [Suspect]
     Active Substance: TRASTUZUMAB
     Indication: GALLBLADDER CANCER
     Dosage: NO
     Route: 065
  2. PERJETA [Suspect]
     Active Substance: PERTUZUMAB
     Indication: GALLBLADDER CANCER
     Dosage: ONGOING : NO
     Route: 065

REACTIONS (2)
  - Death [Fatal]
  - Off label use [Fatal]
